FAERS Safety Report 14496993 (Version 3)
Quarter: 2022Q1

REPORT INFORMATION
  Report Type: Spontaneous
  Country: GB (occurrence: GB)
  Receive Date: 20180207
  Receipt Date: 20220209
  Transmission Date: 20220423
  Serious: Yes (Hospitalization, Other)
  Sender: FDA-Public Use
  Company Number: GB-AUROBINDO-AUR-APL-2018-001254

PATIENT
  Age: 73 Year
  Sex: Female

DRUGS (6)
  1. ALENDRONIC ACID [Suspect]
     Active Substance: ALENDRONIC ACID
     Indication: Osteoporosis postmenopausal
     Dosage: 70 MILLIGRAM, EVERY WEEK, 70 MG, WEEKLY
     Route: 065
     Dates: start: 20030101, end: 20110101
  2. ALENDRONATE SODIUM [Suspect]
     Active Substance: ALENDRONATE SODIUM
     Indication: Osteoporosis postmenopausal
     Dosage: 70 MILLIGRAM, EVERY WEEK, 70 MG, WEEKLY
     Route: 065
     Dates: start: 20030101, end: 20110101
  3. DENOSUMAB [Suspect]
     Active Substance: DENOSUMAB
     Indication: Osteoporosis postmenopausal
     Dosage: UNK
     Route: 058
  4. PROLIA [Suspect]
     Active Substance: DENOSUMAB
     Indication: Osteoporosis postmenopausal
     Dosage: UNK
     Route: 058
     Dates: start: 2011
  5. ERGOCALCIFEROL [Concomitant]
     Active Substance: ERGOCALCIFEROL
     Indication: Supplementation therapy
     Dosage: UNK
     Route: 065
  6. VITAMIN D [Concomitant]
     Active Substance: VITAMIN D NOS
     Indication: Supplementation therapy
     Dosage: UNK
     Route: 065

REACTIONS (3)
  - Femur fracture [Recovered/Resolved]
  - Atypical femur fracture [Recovered/Resolved]
  - Intramedullary rod insertion [Recovered/Resolved]

NARRATIVE: CASE EVENT DATE: 20110101
